FAERS Safety Report 6696532-6 (Version None)
Quarter: 2010Q2

REPORT INFORMATION
  Report Type: 
  Country: None (occurrence: None)
  Receive Date: 20100426
  Receipt Date: 20100420
  Transmission Date: 20101027
  Serious: Yes (Hospitalization)
  Sender: FDA-Public Use
  Company Number: US-ASTRAZENECA-2010SE12209

PATIENT
  Age: 49 Year
  Sex: Male
  Weight: 74 kg

DRUGS (7)
  1. SEROQUEL XR [Suspect]
     Indication: BIPOLAR DISORDER
     Route: 048
  2. SEROQUEL XR [Suspect]
     Route: 048
  3. DEPAKOTE ER [Concomitant]
     Indication: MOOD SWINGS
     Route: 048
  4. DEPAKOTE ER [Concomitant]
     Indication: BIPOLAR DISORDER
     Route: 048
  5. ELAVIL [Concomitant]
     Indication: BIPOLAR DISORDER
     Route: 048
  6. ELAVIL [Concomitant]
     Route: 048
     Dates: start: 20100323, end: 20100406
  7. ABILIFY [Concomitant]
     Indication: BIPOLAR DISORDER
     Route: 048
     Dates: end: 20091125

REACTIONS (5)
  - AGITATION [None]
  - DRUG ABUSE [None]
  - HALLUCINATION, VISUAL [None]
  - INTENTIONAL DRUG MISUSE [None]
  - PSYCHOTIC DISORDER [None]
